FAERS Safety Report 8952514 (Version 3)
Quarter: 2013Q1

REPORT INFORMATION
  Report Type: Spontaneous
  Country: US (occurrence: US)
  Receive Date: 20121205
  Receipt Date: 20130205
  Transmission Date: 20140127
  Serious: Yes (Hospitalization)
  Sender: FDA-Public Use
  Company Number: US-BAYER-2012-126328

PATIENT
  Age: 49 Year
  Sex: Female

DRUGS (23)
  1. YASMIN [Suspect]
     Dosage: UNK
     Dates: start: 20020101, end: 2007
  2. AMOXICILLIN [Concomitant]
     Dosage: 500 MG, 4, ONE HOUR BEFORE DENTAL WORK
     Dates: start: 20070605
  3. PROTONIX [Concomitant]
     Dosage: 40 MG, DAILY
     Dates: start: 20070706
  4. AMBIEN CR [Concomitant]
     Dosage: 12.5 MG, DAILY
     Dates: start: 20070706
  5. DARVOCET-N [Concomitant]
     Indication: PAIN
     Dosage: 650-100MG, 1-2 Q (INTERPRETED AS EVERY) 4-6 HRS PRN
     Dates: start: 20070706
  6. DARVOCET-N [Concomitant]
     Indication: PAIN
     Dosage: 650-100MG, 1-2 Q (INTERPRETED AS EVERY) 4-6 HRS PRN
     Dates: start: 20100503
  7. METOCLOPRAMIDE HCL [Concomitant]
     Dosage: 5 MG, DAILY
     Dates: start: 20070706
  8. LISINOPRIL [Concomitant]
     Dosage: 40 MG, DAILY
     Dates: start: 20070706
  9. KLONOPIN [Concomitant]
     Dosage: 1 MG, HS, DAILY
     Dates: start: 20070706
  10. KLONOPIN [Concomitant]
     Dosage: 2 MG, HS
     Dates: start: 20100503
  11. NEXIUM [Concomitant]
     Dosage: 40 MG,DAILY
     Dates: start: 20070706
  12. NEXIUM [Concomitant]
     Dosage: UNK
     Dates: start: 20100503
  13. VERAPAMIL [Concomitant]
     Dosage: 240 MG, DAILY
     Dates: start: 20070706
  14. BUDEPRION [Concomitant]
     Dosage: 150 MG, 2 Q AM (INTERPRETED AS MORNING), 1 Q PM (INTERPRETED AS EVENING).
     Dates: start: 20070706
  15. CIPRO [Concomitant]
     Indication: URINARY TRACT INFECTION
     Dosage: 500 MG, BID
     Dates: start: 20100312
  16. Z-PAK [Concomitant]
     Dosage: UNK
     Dates: start: 20100322
  17. Z-PAK [Concomitant]
     Dosage: UNK
     Dates: start: 20100416
  18. VERAPAMIL [Concomitant]
     Dosage: 240 MG, DAILY
     Dates: start: 20100503
  19. PRINIVIL [Concomitant]
     Dosage: 40 MG, DAILY
     Dates: start: 20100503
  20. WELLBUTRIN [Concomitant]
     Dosage: 450 MG, DAILY
     Dates: start: 20100503
  21. AZILECT [Concomitant]
     Dosage: 5 MG, HS
     Dates: start: 20100503
  22. OXYBUTYNIN [Concomitant]
     Dosage: 5 MG, TID
     Dates: start: 20100503
  23. LEVBID [Concomitant]
     Dosage: 0.375 MG, PRN
     Dates: start: 20070706

REACTIONS (9)
  - Deep vein thrombosis [None]
  - Deep vein thrombosis [Recovered/Resolved]
  - Pain [None]
  - Injury [None]
  - General physical health deterioration [None]
  - Emotional distress [None]
  - Anhedonia [None]
  - Anxiety [None]
  - Pain [None]
